FAERS Safety Report 18019402 (Version 1)
Quarter: 2020Q3

REPORT INFORMATION
  Report Type: Spontaneous
  Country: US (occurrence: US)
  Receive Date: 20200714
  Receipt Date: 20200714
  Transmission Date: 20201103
  Serious: Yes (Other)
  Sender: FDA-Public Use
  Company Number: None

PATIENT
  Age: 41 Year
  Sex: Male
  Weight: 82.8 kg

DRUGS (20)
  1. DEXMEDETOMIDINE. [Concomitant]
     Active Substance: DEXMEDETOMIDINE
     Dates: start: 20200705, end: 20200705
  2. METRONIDAZOLE. [Concomitant]
     Active Substance: METRONIDAZOLE
     Dates: start: 20200704
  3. MULTIVITAMIN [Concomitant]
     Active Substance: VITAMINS
     Dates: start: 20200705
  4. THIAMINE. [Concomitant]
     Active Substance: THIAMINE
     Dates: start: 20200705
  5. ASPIRIN. [Concomitant]
     Active Substance: ASPIRIN
     Dates: start: 20200705
  6. CEFEPIME [Concomitant]
     Active Substance: CEFEPIME HYDROCHLORIDE
     Dates: start: 20200705
  7. VANCOMYCIN [Concomitant]
     Active Substance: VANCOMYCIN
     Dates: start: 20200705, end: 20200707
  8. HEPARIN [Concomitant]
     Active Substance: HEPARIN SODIUM
     Dates: start: 20200705
  9. KEPPRA [Concomitant]
     Active Substance: LEVETIRACETAM
     Dates: start: 20200705
  10. FENTANYL. [Concomitant]
     Active Substance: FENTANYL
     Dates: start: 20200705, end: 20200707
  11. INSULIN [Concomitant]
     Active Substance: INSULIN NOS
     Dates: start: 20200704
  12. FOLIC ACID. [Concomitant]
     Active Substance: FOLIC ACID
     Dates: start: 20200705
  13. LORAZEPAM. [Concomitant]
     Active Substance: LORAZEPAM
     Dates: start: 20200705
  14. PENTOXIFYLLINE. [Concomitant]
     Active Substance: PENTOXIFYLLINE
     Dates: start: 20200705
  15. KETAMINE [Concomitant]
     Active Substance: KETAMINE
     Dates: start: 20200705
  16. NOREPINEPHRINE. [Concomitant]
     Active Substance: NOREPINEPHRINE
     Dates: start: 20200705, end: 20200708
  17. PANTOPRAZOLE [Concomitant]
     Active Substance: PANTOPRAZOLE
     Dates: start: 20200705
  18. REMDESIVIR EUA [Suspect]
     Active Substance: REMDESIVIR
     Indication: COVID-19
     Dates: start: 20200705, end: 20200709
  19. DEXAMETHASONE. [Concomitant]
     Active Substance: DEXAMETHASONE
     Dates: start: 20200705
  20. PROPOFOL. [Concomitant]
     Active Substance: PROPOFOL
     Dates: start: 20200705, end: 20200711

REACTIONS (1)
  - Blood creatinine increased [None]

NARRATIVE: CASE EVENT DATE: 20200709
